FAERS Safety Report 24085082 (Version 1)
Quarter: 2024Q3

REPORT INFORMATION
  Report Type: Spontaneous
  Country: DE (occurrence: None)
  Receive Date: 20240712
  Receipt Date: 20240712
  Transmission Date: 20241017
  Serious: Yes (Hospitalization)
  Sender: ASTRAZENECA
  Company Number: 2024A154597

PATIENT
  Age: 29 Year
  Sex: Male
  Weight: 68 kg

DRUGS (3)
  1. DAPAGLIFLOZIN [Suspect]
     Active Substance: DAPAGLIFLOZIN
     Indication: Type 2 diabetes mellitus
     Dosage: 10.0MG UNKNOWN
     Route: 048
     Dates: start: 202403
  2. METFORMIN HYDROCHLORIDE [Concomitant]
     Active Substance: METFORMIN HYDROCHLORIDE
     Indication: Type 2 diabetes mellitus
     Dosage: 2X500MG
     Route: 048
     Dates: start: 202301
  3. VALPROATE SODIUM [Concomitant]
     Active Substance: VALPROATE SODIUM
     Indication: Epilepsy
     Dosage: 2X300MG
     Route: 048
     Dates: start: 202301

REACTIONS (2)
  - Anal abscess [Not Recovered/Not Resolved]
  - Fournier^s gangrene [Not Recovered/Not Resolved]

NARRATIVE: CASE EVENT DATE: 20240604
